FAERS Safety Report 6674134-5 (Version None)
Quarter: 2010Q2

REPORT INFORMATION
  Report Type: 
  Country: None (occurrence: None)
  Receive Date: 20100407
  Receipt Date: 20100323
  Transmission Date: 20101027
  Serious: Yes (Disabling)
  Sender: FDA-Public Use
  Company Number: 009064

PATIENT
  Age: 35 Year
  Sex: Male

DRUGS (1)
  1. PLETAL [Suspect]
     Dosage: ORAL
     Route: 048

REACTIONS (13)
  - ACALCULIA [None]
  - AGNOSIA [None]
  - APHASIA [None]
  - BRAIN OEDEMA [None]
  - CEREBRAL HAEMORRHAGE [None]
  - CEREBRAL HYPERPERFUSION SYNDROME [None]
  - CEREBRAL INFARCTION [None]
  - DYSLALIA [None]
  - HEADACHE [None]
  - HYPOAESTHESIA [None]
  - MUSCLE SWELLING [None]
  - POST PROCEDURAL HAEMATOMA [None]
  - SCOTOMA [None]
